FAERS Safety Report 9601227 (Version 1)
Quarter: 2013Q4

REPORT INFORMATION
  Report Type: Spontaneous
  Country: BE (occurrence: BE)
  Receive Date: 20131005
  Receipt Date: 20131005
  Transmission Date: 20140711
  Serious: Yes (Hospitalization)
  Sender: FDA-Public Use
  Company Number: BE-B.I. PHARMACEUTICALS,INC./RIDGEFIELD-2013-BI-31006BL

PATIENT
  Age: 78 Year
  Sex: Male

DRUGS (5)
  1. PRADAXA [Suspect]
     Indication: ATRIAL FIBRILLATION
     Dosage: 300 NR
     Dates: start: 20130401, end: 20130415
  2. PANTOMED [Concomitant]
  3. EMCONCOR MITIS [Concomitant]
  4. ZOCOR [Concomitant]
  5. COVERSYL [Concomitant]

REACTIONS (1)
  - Cerebrovascular accident [Recovered/Resolved]
